FAERS Safety Report 11059486 (Version 1)
Quarter: 2015Q2

REPORT INFORMATION
  Report Type: Spontaneous
  Country: US (occurrence: None)
  Receive Date: 20150420
  Receipt Date: 20150420
  Transmission Date: 20150821
  Serious: No
  Sender: FDA-Public Use
  Company Number: AEGR001204

PATIENT
  Age: 80 Year
  Sex: Female
  Weight: 59.9 kg

DRUGS (6)
  1. VITAMIN D (COLECALCIFEROL) [Concomitant]
  2. VITAMIN E (TOCOPHERYL ACETATE) [Concomitant]
  3. JUXTAPID [Suspect]
     Active Substance: LOMITAPIDE MESYLATE
     Indication: TYPE IIA HYPERLIPIDAEMIA
     Route: 048
     Dates: start: 20150213
  4. ASPIRIN (ACETYLSALICYLIC ACID) [Concomitant]
     Active Substance: ASPIRIN
  5. VITAMIN C (VITAMIN C) [Concomitant]
  6. OMEGA 3 6 9 (OMEGA 9 FATTY ACIDS, OMEGA-3 FATTY ACIDS, OMEGA-6 FATTY ACIDS) [Concomitant]

REACTIONS (2)
  - Weight decreased [None]
  - Constipation [None]

NARRATIVE: CASE EVENT DATE: 201502
